FAERS Safety Report 8571151-5 (Version None)
Quarter: 2012Q3

REPORT INFORMATION
  Report Type: 
  Country: None (occurrence: None)
  Receive Date: 20120730
  Receipt Date: 20120730
  Transmission Date: 20120928
  Serious: Yes (Other)
  Sender: FDA-Public Use
  Company Number: None

PATIENT
  Age: 63 Year
  Sex: Female
  Weight: 69.4003 kg

DRUGS (1)
  1. DOXYCYCLINE [Suspect]
     Indication: LOCALISED INFECTION
     Dosage: X2
     Dates: start: 20120408, end: 20120415

REACTIONS (9)
  - HYPOAESTHESIA [None]
  - CHEST DISCOMFORT [None]
  - STOMATITIS [None]
  - PAIN [None]
  - HEADACHE [None]
  - DERMATITIS [None]
  - DREAMY STATE [None]
  - BURNING SENSATION [None]
  - MELAENA [None]
